FAERS Safety Report 9206703 (Version 2)
Quarter: 2013Q2

REPORT INFORMATION
  Report Type: Spontaneous
  Country: US (occurrence: None)
  Receive Date: 20120731
  Receipt Date: 20121101
  Transmission Date: 20140414
  Serious: No
  Sender: FDA-Public Use
  Company Number: 2012MZ000340

PATIENT
  Age: 57 Year
  Sex: Male
  Weight: 80.74 kg

DRUGS (1)
  1. XEOMIN [Suspect]
     Indication: SKIN WRINKLING
     Dosage: 24 U
     Dates: start: 20120203, end: 20120203

REACTIONS (3)
  - Rash pruritic [None]
  - Erythema [None]
  - Urticaria [None]
